FAERS Safety Report 8903485 (Version 1)
Quarter: 2012Q4

REPORT INFORMATION
  Report Type: 
  Country: CA (occurrence: CA)
  Receive Date: 20121112
  Receipt Date: 20121112
  Transmission Date: 20130627
  Serious: Yes (Hospitalization, Other)
  Sender: FDA-Public Use
  Company Number: CA-AMGEN-CANSP2012062526

PATIENT
  Age: 58 Year
  Sex: Female

DRUGS (2)
  1. XGEVA [Suspect]
     Indication: METASTASES TO BONE
     Dosage: UNK
     Dates: start: 20120222
  2. ERIBULIN [Concomitant]
     Dosage: UNK

REACTIONS (5)
  - Surgery [Recovering/Resolving]
  - Platelet count decreased [Unknown]
  - Therapeutic response decreased [Not Recovered/Not Resolved]
  - Pain in extremity [Unknown]
  - General physical health deterioration [Unknown]
